FAERS Safety Report 7705793-3 (Version None)
Quarter: 2011Q3

REPORT INFORMATION
  Report Type: 
  Country: None (occurrence: None)
  Receive Date: 20110824
  Receipt Date: 20110824
  Transmission Date: 20111222
  Serious: Yes (Other)
  Sender: FDA-Public Use
  Company Number: None

PATIENT
  Sex: Male
  Weight: 25 kg

DRUGS (1)
  1. LAMOTRIGINE [Suspect]
     Indication: CONVULSION
     Dosage: ~4 MG/KG/DAY
     Route: 048
     Dates: start: 20110405, end: 20110505

REACTIONS (8)
  - ERYTHEMA [None]
  - COUGH [None]
  - PYREXIA [None]
  - ASPARTATE AMINOTRANSFERASE INCREASED [None]
  - ALANINE AMINOTRANSFERASE INCREASED [None]
  - RASH PAPULAR [None]
  - FATIGUE [None]
  - RASH MACULO-PAPULAR [None]
